FAERS Safety Report 16878144 (Version 2)
Quarter: 2019Q4

REPORT INFORMATION
  Report Type: Spontaneous
  Country: ES (occurrence: ES)
  Receive Date: 20191002
  Receipt Date: 20191021
  Transmission Date: 20200122
  Serious: Yes (Hospitalization, Other)
  Sender: FDA-Public Use
  Company Number: ES-GALDERMA-ES19060994

PATIENT
  Age: 61 Year
  Sex: Male

DRUGS (12)
  1. MEROPENEM. [Concomitant]
     Active Substance: MEROPENEM
     Indication: BACTERIAL INFECTION
     Route: 065
     Dates: start: 2009
  2. DORIPENEM. [Concomitant]
     Active Substance: DORIPENEM
     Indication: BACTERIAL INFECTION
     Route: 065
     Dates: start: 2009
  3. VANCOMYCIN [Concomitant]
     Active Substance: VANCOMYCIN
     Indication: BACTERIAL INFECTION
     Route: 065
     Dates: start: 2009
  4. FLUCONAZOLE. [Concomitant]
     Active Substance: FLUCONAZOLE
     Indication: PROPHYLAXIS
     Dosage: 100 MG
     Route: 065
     Dates: start: 2009
  5. COLISTIN [Concomitant]
     Active Substance: COLISTIN
     Indication: BACTERIAL INFECTION
     Route: 065
     Dates: start: 2009
  6. METRONIDAZOLE. [Suspect]
     Active Substance: METRONIDAZOLE
     Indication: BACTERIAL INFECTION
     Route: 065
     Dates: start: 2009
  7. FOSFOMYCIN [Concomitant]
     Active Substance: FOSFOMYCIN
     Indication: BACTERIAL INFECTION
     Route: 065
     Dates: start: 2009
  8. AMIKACIN SULFATE. [Concomitant]
     Active Substance: AMIKACIN SULFATE
     Indication: BACTERIAL INFECTION
     Route: 065
     Dates: start: 2009
  9. TEICOPLANIN [Concomitant]
     Active Substance: TEICOPLANIN
     Indication: BACTERIAL INFECTION
     Route: 065
     Dates: start: 2009
  10. CEFTAZIDIME. [Concomitant]
     Active Substance: CEFTAZIDIME
     Indication: BACTERIAL INFECTION
     Route: 065
     Dates: start: 2009
  11. AMPICILLIN [Concomitant]
     Active Substance: AMPICILLIN
     Indication: BACTERIAL INFECTION
     Route: 065
     Dates: start: 2009
  12. PIPERACILLIN AND TAZOBACTAM [Concomitant]
     Active Substance: PIPERACILLIN SODIUM\TAZOBACTAM SODIUM
     Indication: BACTERIAL INFECTION
     Route: 065
     Dates: start: 2009

REACTIONS (8)
  - Ascites [Unknown]
  - Systemic candida [Recovered/Resolved]
  - Pathogen resistance [Unknown]
  - Candida infection [Recovered/Resolved]
  - Off label use [Recovered/Resolved]
  - Sepsis [Recovered/Resolved]
  - Pyrexia [Recovered/Resolved]
  - Oedema peripheral [Unknown]
